FAERS Safety Report 4350620-8 (Version None)
Quarter: 2004Q2

REPORT INFORMATION
  Report Type: 
  Country: None (occurrence: None)
  Receive Date: 20040429
  Receipt Date: 20040429
  Transmission Date: 20050107
  Serious: Yes (Hospitalization)
  Sender: FDA-Public Use
  Company Number: None

PATIENT
  Age: 78 Year
  Sex: Female
  Weight: 83.9154 kg

DRUGS (9)
  1. GATIFLOXACIN [Suspect]
     Indication: URINARY TRACT INFECTION
     Dosage: 400 PO ONE TIME
     Route: 048
     Dates: start: 20040426
  2. GLYBURIDE [Suspect]
     Indication: DIABETES MELLITUS
     Dosage: ? PO DAILY
     Route: 048
     Dates: end: 20040424
  3. PIOGLITAZONE HCL [Concomitant]
  4. ALLEGRA [Concomitant]
  5. ALLOPURINOL TAB [Concomitant]
  6. EFFEXOR [Concomitant]
  7. CELEBREX [Concomitant]
  8. ATENOLOL [Concomitant]
  9. PRECASE [Concomitant]

REACTIONS (2)
  - BLOOD GLUCOSE DECREASED [None]
  - DIZZINESS [None]
